FAERS Safety Report 6554901-9 (Version None)
Quarter: 2010Q1

REPORT INFORMATION
  Report Type: 
  Country: None (occurrence: None)
  Receive Date: 20100125
  Receipt Date: 20100112
  Transmission Date: 20100710
  Serious: Yes (Hospitalization, Other)
  Sender: FDA-Public Use
  Company Number: 230445J10USA

PATIENT
  Age: 72 Year
  Sex: Female
  Weight: 67 kg

DRUGS (14)
  1. REBIF [Suspect]
     Indication: MULTIPLE SCLEROSIS
     Dosage: 44 MCG, 3 IN 1 WEEKS, SUBCUTANEOUS
     Route: 058
     Dates: start: 20091112, end: 20091201
  2. DILTIAZEM [Concomitant]
  3. LASIX [Concomitant]
  4. PRINIVIL [Concomitant]
  5. LABETOLOL (LABETALOL) [Concomitant]
  6. NITROGLYCERIN [Concomitant]
  7. TYLENOL WITH CODEINE (PANADEINE CO) [Concomitant]
  8. ALPRAZOLAM [Concomitant]
  9. PRIMIDONE [Concomitant]
  10. PEPCID [Concomitant]
  11. SIMVASTATIN [Concomitant]
  12. POTASSIUM CHLORIDE [Concomitant]
  13. PROCHLORPERAZINE MALEATE [Concomitant]
  14. FLUTICASONE (FLUTICASONE PROPIONATE) [Concomitant]

REACTIONS (2)
  - BLOOD GLUCOSE INCREASED [None]
  - MYOCARDIAL INFARCTION [None]
